FAERS Safety Report 8545822-0 (Version None)
Quarter: 2012Q3

REPORT INFORMATION
  Report Type: 
  Country: None (occurrence: None)
  Receive Date: 20120727
  Receipt Date: 20120720
  Transmission Date: 20120928
  Serious: Yes (Other)
  Sender: FDA-Public Use
  Company Number: IT-ABBOTT-12P-083-0950450-00

PATIENT
  Sex: Female

DRUGS (3)
  1. CLARITHROMYCIN [Suspect]
     Indication: INFECTED BITES
     Route: 048
     Dates: start: 20120622, end: 20120622
  2. CLARITHROMYCIN [Suspect]
     Indication: ERYTHEMA
  3. XYZAL [Concomitant]
     Indication: PRODUCT USED FOR UNKNOWN INDICATION
     Route: 048

REACTIONS (9)
  - ABDOMINAL DISCOMFORT [None]
  - PERIORBITAL OEDEMA [None]
  - NAUSEA [None]
  - DIARRHOEA [None]
  - ERYTHEMA [None]
  - VOMITING [None]
  - STOMATITIS [None]
  - PRURITUS [None]
  - HYPERSENSITIVITY [None]
